FAERS Safety Report 10046560 (Version 1)
Quarter: 2014Q1

REPORT INFORMATION
  Report Type: Spontaneous
  Country: US (occurrence: US)
  Receive Date: 20140331
  Receipt Date: 20140331
  Transmission Date: 20141002
  Serious: No
  Sender: FDA-Public Use
  Company Number: US-BIOGENIDEC-2014BI028226

PATIENT
  Age: 55 Year
  Sex: Female

DRUGS (19)
  1. TECFIDERA [Suspect]
     Indication: MULTIPLE SCLEROSIS
     Route: 048
     Dates: start: 201402
  2. TECFIDERA [Suspect]
     Indication: MULTIPLE SCLEROSIS
     Route: 048
     Dates: end: 201403
  3. PRINIVIL [Concomitant]
  4. EFFEXOR [Concomitant]
  5. XANAX [Concomitant]
  6. GABAPENTIN [Concomitant]
  7. PRILOSEC [Concomitant]
  8. CRESTOR [Concomitant]
  9. ESTRADIOL [Concomitant]
  10. OXYCODONE [Concomitant]
  11. VITAMIN D3 [Concomitant]
  12. LUNESTA [Concomitant]
  13. CALCIUM [Concomitant]
  14. CRANBERRY [Concomitant]
  15. IRON [Concomitant]
  16. NORCO [Concomitant]
  17. IBUPROFEN [Concomitant]
  18. RAPAFLO [Concomitant]
  19. VITAMIN E [Concomitant]

REACTIONS (3)
  - Muscle strain [Recovered/Resolved]
  - Migraine [Recovered/Resolved]
  - Vomiting [Recovered/Resolved]
